FAERS Safety Report 8602444-0 (Version None)
Quarter: 2012Q3

REPORT INFORMATION
  Report Type: 
  Country: None (occurrence: None)
  Receive Date: 20120817
  Receipt Date: 20120725
  Transmission Date: 20120928
  Serious: Yes (Other)
  Sender: FDA-Public Use
  Company Number: PL-ROCHE-1093486

PATIENT
  Sex: Female

DRUGS (5)
  1. HERCEPTIN [Suspect]
     Dates: end: 20100527
  2. HERCEPTIN [Suspect]
     Indication: BREAST CANCER METASTATIC
     Dosage: STOPPED AFTER 14 CYCLES.
     Route: 065
     Dates: start: 20090805
  3. LAPATINIB [Concomitant]
     Indication: BREAST CANCER METASTATIC
  4. NAVELBINE [Concomitant]
     Dosage: 14 CYCLES
     Dates: start: 20100627, end: 20101222
  5. XELODA [Suspect]
     Indication: BREAST CANCER METASTATIC
     Dates: start: 20110811

REACTIONS (6)
  - METASTATIC NEOPLASM [None]
  - ABSCESS [None]
  - DISEASE PROGRESSION [None]
  - BREAST NEOPLASM [None]
  - RASH ERYTHEMATOUS [None]
  - RECURRENT CANCER [None]
